FAERS Safety Report 11349951 (Version 1)
Quarter: 2015Q3

REPORT INFORMATION
  Report Type: Spontaneous
  Country: CA (occurrence: CA)
  Receive Date: 20150807
  Receipt Date: 20150807
  Transmission Date: 20151125
  Serious: Yes (Disabling)
  Sender: FDA-Public Use
  Company Number: CA-JNJFOC-20150721607

PATIENT
  Age: 25 Year
  Sex: Female
  Weight: 145 kg

DRUGS (1)
  1. RISPERDAL CONSTA [Suspect]
     Active Substance: RISPERIDONE
     Indication: BIPOLAR DISORDER
     Dosage: 50 (UNITS UNSPECIFIED)
     Route: 030

REACTIONS (2)
  - Pituitary tumour benign [Not Recovered/Not Resolved]
  - Blood prolactin increased [Not Recovered/Not Resolved]
